FAERS Safety Report 6702812-8 (Version None)
Quarter: 2010Q2

REPORT INFORMATION
  Report Type: 
  Country: None (occurrence: None)
  Receive Date: 20100429
  Receipt Date: 20100429
  Transmission Date: 20101027
  Serious: Yes (Life-Threatening, Hospitalization)
  Sender: FDA-Public Use
  Company Number: None

PATIENT
  Sex: Male
  Weight: 95.709 kg

DRUGS (1)
  1. 5-FLUOROURACIL DON'T KNOW DON'T KNOW [Suspect]
     Indication: COLON CANCER STAGE IV
     Dosage: DON'T KNOW PLAN-EVERY 2 WEEKS IV DRIP
     Route: 041
     Dates: start: 20100305, end: 20100307

REACTIONS (19)
  - ALOPECIA [None]
  - BACK PAIN [None]
  - BLOOD CREATINE INCREASED [None]
  - DIARRHOEA [None]
  - DRUG TOXICITY [None]
  - HYPOPHAGIA [None]
  - MALAISE [None]
  - MICTURITION URGENCY [None]
  - NAUSEA [None]
  - NEUTROPENIA [None]
  - NO THERAPEUTIC RESPONSE [None]
  - ODYNOPHAGIA [None]
  - POLLAKIURIA [None]
  - RENAL DISORDER [None]
  - THROMBOSIS [None]
  - URINARY RETENTION [None]
  - VOMITING [None]
  - WEIGHT DECREASED [None]
  - WHITE BLOOD CELL COUNT DECREASED [None]
